FAERS Safety Report 23847772 (Version 1)
Quarter: 2024Q2

REPORT INFORMATION
  Report Type: Other
  Country: KR (occurrence: None)
  Receive Date: 20240513
  Receipt Date: 20240513
  Transmission Date: 20240716
  Serious: Yes (Other)
  Sender: FDA-Public Use
  Company Number: KR-ROCHE-3561202

PATIENT

DRUGS (4)
  1. BEVACIZUMAB [Suspect]
     Active Substance: BEVACIZUMAB
     Indication: Ovarian epithelial cancer recurrent
     Route: 065
  2. TOPOTECAN [Suspect]
     Active Substance: TOPOTECAN HYDROCHLORIDE
     Indication: Ovarian epithelial cancer recurrent
     Dosage: 4MG/M2 IV ON DAYS 1,8, AND 15 EVERY 4 WEEKS OR 1.25 MG/M2 ON DAYS 1 TO 5 EVERY 3 WEEKS.
     Route: 042
  3. PACLITAXEL [Suspect]
     Active Substance: PACLITAXEL
     Indication: Ovarian epithelial cancer recurrent
     Dosage: ON DAYS 1,8,15 AND 22.
     Route: 042
  4. DOXORUBICIN HYDROCHLORIDE [Suspect]
     Active Substance: DOXORUBICIN HYDROCHLORIDE
     Indication: Ovarian epithelial cancer recurrent
     Dosage: ON DAY 1.
     Route: 042

REACTIONS (6)
  - Haematotoxicity [Unknown]
  - Neutropenia [Unknown]
  - Anaemia [Unknown]
  - Hypertension [Unknown]
  - Peripheral sensory neuropathy [Unknown]
  - Mastitis [Unknown]
